FAERS Safety Report 11329769 (Version 1)
Quarter: 2015Q3

REPORT INFORMATION
  Report Type: Spontaneous
  Country: US (occurrence: None)
  Receive Date: 20150730
  Receipt Date: 20150730
  Transmission Date: 20151125
  Serious: Yes (Other)
  Sender: FDA-Public Use
  Company Number: TPU2015-00372

PATIENT
  Sex: Female
  Weight: 65.77 kg

DRUGS (13)
  1. LIDOCAINE. [Suspect]
     Active Substance: LIDOCAINE
     Indication: MULTIPLE SCLEROSIS
     Route: 061
     Dates: start: 2010
  2. MODAFINIL (MODAFINIL) [Concomitant]
     Active Substance: MODAFINIL
  3. NUEDEXTA (NUEDEXTA) [Concomitant]
  4. TRAMADOL (TRAMADOL) [Concomitant]
     Active Substance: TRAMADOL
  5. LIDOCAINE. [Suspect]
     Active Substance: LIDOCAINE
     Indication: MUSCLE SPASMS
     Route: 061
     Dates: start: 2010
  6. GABAPENTIN (GABAPENTIN) [Concomitant]
     Active Substance: GABAPENTIN
  7. IBUPROFEN (IBUPROFEN) [Concomitant]
     Active Substance: IBUPROFEN
  8. AMANTADINE (AMANTADINE) [Concomitant]
  9. PRAVASTATIN [Concomitant]
     Active Substance: PRAVASTATIN\PRAVASTATIN SODIUM
  10. LIDOCAINE. [Suspect]
     Active Substance: LIDOCAINE
     Indication: PROCEDURAL PAIN
     Route: 061
     Dates: start: 2010
  11. SPIRIVA [Concomitant]
     Active Substance: TIOTROPIUM BROMIDE MONOHYDRATE
  12. AUBAGIO (TERIFLUNOMIDE) [Concomitant]
  13. BACLOFEN (BACLOFEN) [Concomitant]
     Active Substance: BACLOFEN

REACTIONS (4)
  - Lung neoplasm malignant [None]
  - Somnolence [None]
  - Drug ineffective for unapproved indication [None]
  - Chronic obstructive pulmonary disease [None]

NARRATIVE: CASE EVENT DATE: 2010
